FAERS Safety Report 6246504-0 (Version None)
Quarter: 2009Q2

REPORT INFORMATION
  Report Type: 
  Country: None (occurrence: None)
  Receive Date: 20090626
  Receipt Date: 20090612
  Transmission Date: 20091009
  Serious: Yes (Hospitalization)
  Sender: FDA-Public Use
  Company Number: DE-ROCHE-638534

PATIENT
  Sex: Male
  Weight: 105 kg

DRUGS (1)
  1. INTERFERON ALFA-2A [Suspect]
     Route: 065
     Dates: start: 20080401

REACTIONS (1)
  - LEUKAEMIA [None]
